FAERS Safety Report 11331323 (Version 1)
Quarter: 2015Q3

REPORT INFORMATION
  Report Type: Spontaneous
  Country: FR (occurrence: FR)
  Receive Date: 20150803
  Receipt Date: 20150803
  Transmission Date: 20151125
  Serious: Yes (Other)
  Sender: FDA-Public Use
  Company Number: FR-ASTRAZENECA-2015SE72963

PATIENT
  Age: 809 Day
  Sex: Female
  Weight: 13.6 kg

DRUGS (9)
  1. ONDANSETRON [Concomitant]
     Active Substance: ONDANSETRON
  2. STEROGYL [Concomitant]
     Active Substance: ERGOCALCIFEROL
  3. VINCRISTINE HOSPIRA [Suspect]
     Active Substance: VINCRISTINE
     Route: 042
     Dates: start: 20150630
  4. ARACYTINE [Suspect]
     Active Substance: CYTARABINE
     Route: 042
     Dates: start: 20150630, end: 20150701
  5. ATARAX [Suspect]
     Active Substance: HYDROXYZINE\HYDROXYZINE HYDROCHLORIDE
     Route: 042
     Dates: start: 20150630, end: 20150701
  6. DEXAMETHASONE. [Concomitant]
     Active Substance: DEXAMETHASONE
  7. INEXIUM [Suspect]
     Active Substance: ESOMEPRAZOLE
     Route: 042
     Dates: start: 20150630, end: 20150704
  8. ETOPOSIDE. [Suspect]
     Active Substance: ETOPOSIDE
     Route: 042
     Dates: start: 20150702, end: 20150704
  9. CALCIDOSE [Concomitant]
     Active Substance: CALCIUM CARBONATE

REACTIONS (1)
  - Personality disorder [Recovered/Resolved]

NARRATIVE: CASE EVENT DATE: 20150702
